FAERS Safety Report 6258560-4 (Version None)
Quarter: 2009Q3

REPORT INFORMATION
  Report Type: 
  Country: None (occurrence: None)
  Receive Date: 20090707
  Receipt Date: 20090623
  Transmission Date: 20100115
  Serious: Yes (Other)
  Sender: FDA-Public Use
  Company Number: US-ROCHE-640454

PATIENT
  Age: 51 Year
  Sex: Female

DRUGS (4)
  1. TAMIFLU [Suspect]
     Route: 048
     Dates: start: 20090615, end: 20090622
  2. DILAUDID [Concomitant]
  3. ATIVAN [Concomitant]
     Dosage: DRUG REPORTED: ATAVAN
  4. PREVACID [Concomitant]

REACTIONS (7)
  - ATAXIA [None]
  - CONFUSIONAL STATE [None]
  - DELIRIUM [None]
  - EATING DISORDER [None]
  - FEAR [None]
  - HYPOPHAGIA [None]
  - SPEECH DISORDER [None]
